FAERS Safety Report 24613553 (Version 1)
Quarter: 2024Q4

REPORT INFORMATION
  Report Type: Spontaneous
  Country: DE (occurrence: DE)
  Receive Date: 20241113
  Receipt Date: 20241113
  Transmission Date: 20250115
  Serious: Yes (Hospitalization, Other)
  Sender: SANDOZ
  Company Number: DE-ROCHE-2232459

PATIENT
  Age: 53 Year
  Sex: Female
  Weight: 73 kg

DRUGS (28)
  1. AMANTADINE [Suspect]
     Active Substance: AMANTADINE
     Indication: Product used for unknown indication
     Dosage: 100 MG, BID (1-1-0)
     Route: 065
  2. OCREVUS [Suspect]
     Active Substance: OCRELIZUMAB
     Dosage: 300 MG (NEXT DOSE OF OCREVUS (300 MG) ON 14/JUN/2018)
     Route: 042
     Dates: start: 20180531
  3. OCREVUS [Suspect]
     Active Substance: OCRELIZUMAB
     Indication: Progressive relapsing multiple sclerosis
     Dosage: 600 MG (5TH INFUSION)
     Route: 042
  4. OCREVUS [Suspect]
     Active Substance: OCRELIZUMAB
     Indication: Secondary progressive multiple sclerosis
     Dosage: 600 MG (THEN ONCE EVERY 178 DAYS, THEN 600 MG ONCE IN 165 DAYS)
     Route: 042
     Dates: start: 20200917
  5. OCREVUS [Suspect]
     Active Substance: OCRELIZUMAB
     Dosage: 600 MG,3RD INFUSION
     Route: 042
     Dates: start: 20181213
  6. BACLOFEN [Concomitant]
     Active Substance: BACLOFEN
     Indication: Product used for unknown indication
     Dosage: 10 MG,QD
     Route: 065
  7. BACLOFEN [Concomitant]
     Active Substance: BACLOFEN
     Dosage: 10.000MG QD
     Route: 065
  8. CYMBALTA [Concomitant]
     Active Substance: DULOXETINE HYDROCHLORIDE
     Indication: Product used for unknown indication
     Dosage: 30 MG,QD
     Route: 065
  9. CYMBALTA [Concomitant]
     Active Substance: DULOXETINE HYDROCHLORIDE
     Dosage: 30.000MG QD
     Route: 065
  10. CYMBALTA [Concomitant]
     Active Substance: DULOXETINE HYDROCHLORIDE
     Dosage: 60 MG,QD
     Route: 065
  11. CYMBALTA [Concomitant]
     Active Substance: DULOXETINE HYDROCHLORIDE
     Dosage: 60.000MG QD
     Route: 065
  12. DALFAMPRIDINE [Concomitant]
     Active Substance: DALFAMPRIDINE
     Indication: Product used for unknown indication
     Dosage: 10 MG (0.5 DAYS)
     Route: 065
  13. DALFAMPRIDINE [Concomitant]
     Active Substance: DALFAMPRIDINE
     Dosage: 10.000MG
     Route: 065
  14. FOLIC ACID [Concomitant]
     Active Substance: FOLIC ACID
     Indication: Product used for unknown indication
     Dosage: 5 MG,QD
     Route: 065
  15. FOLIC ACID [Concomitant]
     Active Substance: FOLIC ACID
     Dosage: 5.000MG QD
     Route: 065
  16. LYRICA [Concomitant]
     Active Substance: PREGABALIN
     Dosage: 100 MG, QD
     Route: 065
  17. LYRICA [Concomitant]
     Active Substance: PREGABALIN
     Indication: Product used for unknown indication
     Dosage: 75 MG (0.33 DAYS)
     Route: 065
  18. LYRICA [Concomitant]
     Active Substance: PREGABALIN
     Dosage: 75 MG (0.5 DAYS)
     Route: 065
  19. PREGABALIN [Concomitant]
     Active Substance: PREGABALIN
     Dosage: 100.000MG QD
     Route: 065
  20. PREGABALIN [Concomitant]
     Active Substance: PREGABALIN
     Indication: Product used for unknown indication
     Dosage: 75 MG (0.5 DAYS)
     Route: 065
  21. PREGABALIN [Concomitant]
     Active Substance: PREGABALIN
     Dosage: 75.000MG
     Route: 065
  22. PREGABALIN [Concomitant]
     Active Substance: PREGABALIN
     Dosage: 75.000MG
     Route: 065
  23. TIZANIDINE [Concomitant]
     Active Substance: TIZANIDINE
     Dosage: 1-0-1
     Route: 065
  24. TIZANIDINE [Concomitant]
     Active Substance: TIZANIDINE
     Dosage: 2 MG (0.33 DAYS)
     Route: 065
  25. TIZANIDINE [Concomitant]
     Active Substance: TIZANIDINE
     Indication: Product used for unknown indication
     Dosage: 2 MG (0.5 DAYS)
     Route: 065
  26. TIZANIDINE [Concomitant]
     Active Substance: TIZANIDINE
     Dosage: 2.000MG
     Route: 065
  27. SOLIFENACIN [Concomitant]
     Active Substance: SOLIFENACIN
     Dosage: QD
     Route: 065
  28. SOLIFENACIN [Concomitant]
     Active Substance: SOLIFENACIN
     Indication: Product used for unknown indication
     Dosage: UNK, QD
     Route: 065

REACTIONS (23)
  - Multiple sclerosis relapse [Recovered/Resolved]
  - Multiple sclerosis [Recovered/Resolved]
  - Radius fracture [Not Recovered/Not Resolved]
  - Fatigue [Recovering/Resolving]
  - Disturbance in attention [Recovering/Resolving]
  - Tendon rupture [Not Recovered/Not Resolved]
  - Sciatica [Not Recovered/Not Resolved]
  - Productive cough [Recovered/Resolved]
  - Pain [Not Recovered/Not Resolved]
  - Osteoarthritis [Not Recovered/Not Resolved]
  - Weight increased [Recovered/Resolved]
  - Arthralgia [Not Recovered/Not Resolved]
  - Peripheral coldness [Not Recovered/Not Resolved]
  - Fall [Unknown]
  - Nasopharyngitis [Recovered/Resolved]
  - Urinary tract infection [Recovered/Resolved]
  - Asthenia [Not Recovered/Not Resolved]
  - Contusion [Recovered/Resolved]
  - Gait disturbance [Not Recovered/Not Resolved]
  - Balance disorder [Not Recovered/Not Resolved]
  - Sluggishness [Recovered/Resolved]
  - Disorientation [Not Recovered/Not Resolved]
  - Lethargy [Recovering/Resolving]

NARRATIVE: CASE EVENT DATE: 20180531
